FAERS Safety Report 8239120-2 (Version None)
Quarter: 2012Q1

REPORT INFORMATION
  Report Type: 
  Country: None (occurrence: None)
  Receive Date: 20120328
  Receipt Date: 20120320
  Transmission Date: 20120608
  Serious: Yes (Other)
  Sender: FDA-Public Use
  Company Number: US-AMGEN-USASP2012017981

PATIENT
  Age: 32 Year
  Sex: Female

DRUGS (1)
  1. ENBREL [Suspect]
     Indication: RHEUMATOID ARTHRITIS
     Dosage: UNK MG, QWK
     Route: 058
     Dates: start: 20120101

REACTIONS (3)
  - COLORECTAL CANCER [None]
  - HEPATIC LESION [None]
  - RHEUMATOID ARTHRITIS [None]
